FAERS Safety Report 6871290-0 (Version None)
Quarter: 2010Q3

REPORT INFORMATION
  Report Type: 
  Country: None (occurrence: None)
  Receive Date: 20100723
  Receipt Date: 20100713
  Transmission Date: 20110219
  Serious: Yes (Hospitalization, Other)
  Sender: FDA-Public Use
  Company Number: US-PFIZER INC-2010081698

PATIENT
  Sex: Female
  Weight: 61.234 kg

DRUGS (13)
  1. CELEBREX [Suspect]
     Dosage: 200 MG, 1X/DAY
     Dates: start: 20100101
  2. NAPROXEN [Suspect]
     Dosage: 500 MG, 2X/DAY
     Dates: end: 20100101
  3. TRICOR [Suspect]
     Dosage: 145 MG, UNK
     Dates: end: 20100101
  4. LOVASTATIN [Suspect]
     Dosage: 60 MG, UNK
     Dates: end: 20100101
  5. CLIMARA [Suspect]
     Indication: HOT FLUSH
     Dosage: UNK
     Route: 062
     Dates: start: 20090101
  6. PREMPRO [Concomitant]
     Indication: HOT FLUSH
     Dosage: UNK
     Dates: end: 20090101
  7. ACETYLSALICYLIC ACID [Concomitant]
     Dosage: UNK
  8. HYZAAR [Concomitant]
     Indication: BLOOD PRESSURE
     Dosage: UNK
  9. FENTANYL [Concomitant]
     Dosage: FREQUENCY: EVERY 72 HOURS,
     Route: 062
  10. ACIPHEX [Concomitant]
     Dosage: 20 MG, 1X/DAY
  11. WELLBUTRIN XL [Concomitant]
     Dosage: 150 MG, 2X/DAY
  12. MULTI-VITAMINS [Concomitant]
     Dosage: UNK
  13. RESTORIL [Concomitant]
     Indication: SLEEP DISORDER
     Dosage: 15 MG, UNK

REACTIONS (2)
  - ALOPECIA [None]
  - MUSCULOSKELETAL DISCOMFORT [None]
